FAERS Safety Report 17218160 (Version 1)
Quarter: 2019Q4

REPORT INFORMATION
  Report Type: Other
  Country: GB (occurrence: GB)
  Receive Date: 20191231
  Receipt Date: 20191231
  Transmission Date: 20200122
  Serious: Yes (Other)
  Sender: FDA-Public Use
  Company Number: GB-EMCURE PHARMACEUTICALS LTD-2019-EPL-1254

PATIENT
  Age: 68 Year
  Sex: Female

DRUGS (5)
  1. METFORMIN [Suspect]
     Active Substance: METFORMIN HYDROCHLORIDE
     Indication: DIABETES MELLITUS
     Dosage: 500 MILLIGRAM
     Dates: start: 20191119
  2. METABET [Suspect]
     Active Substance: METFORMIN HYDROCHLORIDE
     Indication: DIABETES MELLITUS
     Dosage: 150 MILLIGRAM,DAILY, TAKE 2 WITH BREAKFAST AND 1 WITH EVENING MEAL
     Route: 048
     Dates: start: 20191203, end: 20191208
  3. COD-LIVER OIL [Concomitant]
     Active Substance: COD LIVER OIL
     Dosage: UNK
  4. ATORVASTATIN [Concomitant]
     Active Substance: ATORVASTATIN
     Dosage: UNK
  5. IRBESARTAN. [Concomitant]
     Active Substance: IRBESARTAN
     Dosage: UNK

REACTIONS (5)
  - Myalgia [Not Recovered/Not Resolved]
  - Diarrhoea [Unknown]
  - Restless legs syndrome [Not Recovered/Not Resolved]
  - Memory impairment [Recovering/Resolving]
  - Malaise [Unknown]

NARRATIVE: CASE EVENT DATE: 20191203
